FAERS Safety Report 10144013 (Version 3)
Quarter: 2014Q2

REPORT INFORMATION
  Report Type: Spontaneous
  Country: JP (occurrence: JP)
  Receive Date: 20140430
  Receipt Date: 20140508
  Transmission Date: 20141212
  Serious: No
  Sender: FDA-Public Use
  Company Number: JP-SUCAMPO PHARMA AMERICAS, INC-SPI201400302

PATIENT
  Age: 55 Year
  Sex: Female

DRUGS (4)
  1. AMITIZA [Suspect]
     Indication: CONSTIPATION
     Dosage: 24 MCG, BID
     Route: 048
     Dates: start: 20140128, end: 20140421
  2. LIVACT [Concomitant]
     Indication: HEPATIC FUNCTION ABNORMAL
     Dosage: 4.15 G, QD
     Route: 048
     Dates: start: 20140311, end: 20140317
  3. LIVACT [Concomitant]
     Dosage: 4.15 G, BID
     Route: 048
     Dates: start: 20140318, end: 20140324
  4. LIVACT [Concomitant]
     Dosage: 4.15 G, TID
     Route: 048
     Dates: start: 20140325

REACTIONS (1)
  - Renal impairment [Recovering/Resolving]
